FAERS Safety Report 13191596 (Version 1)
Quarter: 2017Q1

REPORT INFORMATION
  Report Type: Spontaneous
  Country: CA (occurrence: CA)
  Receive Date: 20170207
  Receipt Date: 20170207
  Transmission Date: 20170428
  Serious: Yes (Other)
  Sender: FDA-Public Use
  Company Number: CA-BAUSCH-BL-2017-002661

PATIENT

DRUGS (2)
  1. TOBRAMYCIN AND DEXAMETHASONE [Suspect]
     Active Substance: DEXAMETHASONE\TOBRAMYCIN
     Indication: POSTOPERATIVE CARE
     Route: 047
  2. ATROPINE SULFATE. [Suspect]
     Active Substance: ATROPINE SULFATE
     Indication: POSTOPERATIVE CARE
     Route: 047

REACTIONS (1)
  - Posterior capsule opacification [Unknown]
